FAERS Safety Report 4640463-X (Version None)
Quarter: 2005Q2

REPORT INFORMATION
  Report Type: 
  Country: None (occurrence: None)
  Receive Date: 20050419
  Receipt Date: 20050406
  Transmission Date: 20051028
  Serious: Yes (Hospitalization)
  Sender: FDA-Public Use
  Company Number: 2005055158

PATIENT
  Age: 31 Year
  Sex: Female

DRUGS (3)
  1. FLAGYL [Suspect]
     Indication: ABDOMINAL PAIN UPPER
     Dates: start: 20041001, end: 20041001
  2. ESCITALOPRAM OXALATE [Suspect]
     Indication: DEPRESSION
     Dosage: 30 MG (30 MG, 1 IN 1 D), ORAL
     Route: 048
     Dates: start: 20030101, end: 20041001
  3. CIPROFLOXACIN [Suspect]
     Indication: ABDOMINAL PAIN UPPER
     Dates: start: 20041001, end: 20041001

REACTIONS (5)
  - ABDOMINAL PAIN UPPER [None]
  - DRUG INTERACTION [None]
  - HYPOAESTHESIA [None]
  - PANIC ATTACK [None]
  - REFUSAL OF TREATMENT BY PATIENT [None]
